FAERS Safety Report 17009898 (Version 1)
Quarter: 2019Q4

REPORT INFORMATION
  Report Type: Spontaneous
  Country: GB (occurrence: GB)
  Receive Date: 20191108
  Receipt Date: 20191108
  Transmission Date: 20200122
  Serious: Yes (Life-Threatening)
  Sender: FDA-Public Use
  Company Number: GB-PFIZER INC-2019477011

PATIENT
  Age: 59 Year
  Sex: Female
  Weight: 92.8 kg

DRUGS (1)
  1. DOXYCYCLINE MONOHYDRATE [Suspect]
     Active Substance: DOXYCYCLINE
     Indication: PNEUMONIA
     Dosage: 100 MG, 2 FIRST DAY, THEN 1 TABLET A DAY
     Route: 048
     Dates: start: 20190923, end: 20190927

REACTIONS (4)
  - Swelling [Recovering/Resolving]
  - Rash pruritic [Recovering/Resolving]
  - Swelling face [Recovering/Resolving]
  - Lip swelling [Recovering/Resolving]

NARRATIVE: CASE EVENT DATE: 20190924
